FAERS Safety Report 5318896-8 (Version None)
Quarter: 2007Q2

REPORT INFORMATION
  Report Type: 
  Country: None (occurrence: None)
  Receive Date: 20070503
  Receipt Date: 20070427
  Transmission Date: 20071010
  Serious: Yes (Hospitalization)
  Sender: FDA-Public Use
  Company Number: 2007-02094

PATIENT
  Age: 55 Year
  Sex: Male

DRUGS (1)
  1. ACYCLOVIR (WATSON LABORATORIES)(ACYCLOVIR) UNKNOWN [Suspect]
     Indication: HERPES ZOSTER DISSEMINATED
     Dosage: 850 MG/M2/DAY (DIVIDED DOSES), INTRAVENOUS
     Route: 042
     Dates: start: 20060601, end: 20060601

REACTIONS (2)
  - DEHYDRATION [None]
  - RENAL FAILURE ACUTE [None]
